FAERS Safety Report 6232339-1 (Version None)
Quarter: 2009Q2

REPORT INFORMATION
  Report Type: 
  Country: None (occurrence: None)
  Receive Date: 20090615
  Receipt Date: 20090615
  Transmission Date: 20091009
  Serious: No
  Sender: FDA-Public Use
  Company Number: None

PATIENT
  Age: 83 Year
  Sex: Male
  Weight: 74.8435 kg

DRUGS (1)
  1. VIADUR [Suspect]
     Indication: PROSTATE CANCER
     Dosage: INJECTION 2/3/9 EVERY 3 MOS. 22.5MG RECEIVED 1 INJECTION

REACTIONS (1)
  - TRANSIENT ACANTHOLYTIC DERMATOSIS [None]
